FAERS Safety Report 8391051-3 (Version None)
Quarter: 2012Q2

REPORT INFORMATION
  Report Type: 
  Country: None (occurrence: None)
  Receive Date: 20120521
  Receipt Date: 20120510
  Transmission Date: 20120825
  Serious: Yes (Death, Hospitalization)
  Sender: FDA-Public Use
  Company Number: ACO_30294_2012

PATIENT
  Age: 68 Year
  Sex: Female
  Weight: 45.7 kg

DRUGS (11)
  1. EFFEXOR [Concomitant]
  2. OXYBUTYNIN [Concomitant]
  3. METOPROLOL TARTRATE [Concomitant]
  4. FOSAMAX [Concomitant]
  5. GRAVOL (DIMENHYDRINATE) [Concomitant]
  6. AMPYRA [Suspect]
     Indication: MULTIPLE SCLEROSIS
     Dates: start: 20050101
  7. BACLOFEN [Concomitant]
  8. COVERSYL /00790702/ (PERINDOPRIL ERBUMINE) [Concomitant]
  9. HYALURONATE SODIUM (HYALURONATE SODIUM) [Concomitant]
  10. PLAQUENIL /00072602/ (HYDROXYCHLOROQUINE PHOSPHATE) [Concomitant]
  11. CALCIUM CARBONATE [Concomitant]

REACTIONS (18)
  - RESPIRATORY DISTRESS [None]
  - CEREBRAL SMALL VESSEL ISCHAEMIC DISEASE [None]
  - THROMBOSIS [None]
  - BLOOD SODIUM DECREASED [None]
  - BLOOD THYROID STIMULATING HORMONE INCREASED [None]
  - HAEMATOCRIT DECREASED [None]
  - CARDIOGENIC SHOCK [None]
  - ASPARTATE AMINOTRANSFERASE INCREASED [None]
  - SEPSIS [None]
  - BLOOD MAGNESIUM DECREASED [None]
  - TROPONIN T INCREASED [None]
  - HAEMOGLOBIN DECREASED [None]
  - GRAND MAL CONVULSION [None]
  - BLOOD CHLORIDE INCREASED [None]
  - PULMONARY EMBOLISM [None]
  - BLOOD CALCIUM DECREASED [None]
  - BLOOD CREATININE INCREASED [None]
  - NEUTROPHIL PERCENTAGE INCREASED [None]
